APPROVED DRUG PRODUCT: LOPRESSOR
Active Ingredient: METOPROLOL TARTRATE
Strength: 1MG/ML **Federal Register determination that product was not discontinued or withdrawn for safety or effectiveness reasons**
Dosage Form/Route: INJECTABLE;INJECTION
Application: N018704 | Product #001
Applicant: NOVARTIS PHARMACEUTICALS CORP
Approved: Mar 30, 1984 | RLD: Yes | RS: No | Type: DISCN